FAERS Safety Report 9696373 (Version 1)
Quarter: 2013Q4

REPORT INFORMATION
  Report Type: Spontaneous
  Country: IT (occurrence: IT)
  Receive Date: 20131119
  Receipt Date: 20131119
  Transmission Date: 20140711
  Serious: Yes (Hospitalization)
  Sender: FDA-Public Use
  Company Number: PHHY2013IT131092

PATIENT
  Age: 86 Year
  Sex: Female

DRUGS (11)
  1. LORMETAZEPAM [Suspect]
     Indication: PSYCHOMOTOR HYPERACTIVITY
     Dosage: 2.5 MG, QD
     Route: 048
     Dates: start: 20121101, end: 20130517
  2. BISOPROLOL [Suspect]
  3. CLEXANE [Concomitant]
  4. EUTIROX [Concomitant]
  5. ZYLORIC [Concomitant]
  6. RANEXA [Concomitant]
  7. ACETYLSALICYLIC ACID [Concomitant]
  8. CLOPIDOGREL [Concomitant]
  9. GABAPENTIN [Concomitant]
  10. MIRTAZAPINE [Concomitant]
  11. LANSOPRAZOLE [Concomitant]

REACTIONS (2)
  - Hypokinesia [Recovered/Resolved]
  - Sopor [Recovered/Resolved]
